FAERS Safety Report 9936798 (Version 1)
Quarter: 2014Q1

REPORT INFORMATION
  Report Type: Spontaneous
  Country: US (occurrence: None)
  Receive Date: 20140109
  Receipt Date: 20140109
  Transmission Date: 20141002
  Serious: Yes (Other)
  Sender: FDA-Public Use
  Company Number: 387856

PATIENT
  Sex: Female

DRUGS (1)
  1. LEVEMIR (INSULIN DETEMIR) SOLUTION FOR INJECTION, .0024MOL/L [Suspect]
     Indication: PRODUCT USED FOR UNKNOWN INDICATION
     Route: 042
     Dates: start: 20130916, end: 20130916

REACTIONS (3)
  - Wrong drug administered [None]
  - Incorrect route of drug administration [None]
  - Hypoglycaemia [None]
